FAERS Safety Report 5252722-0 (Version None)
Quarter: 2007Q1

REPORT INFORMATION
  Report Type: 
  Country: None (occurrence: None)
  Receive Date: 20070301
  Receipt Date: 20070118
  Transmission Date: 20070707
  Serious: Yes (Other)
  Sender: FDA-Public Use
  Company Number: US-GLAXOSMITHKLINE-A0627828A

PATIENT
  Age: 25 Year
  Sex: Female

DRUGS (3)
  1. LAMICTAL [Suspect]
     Dosage: 100MG PER DAY
     Route: 048
     Dates: start: 20060916, end: 20061017
  2. KEPPRA [Concomitant]
  3. CENTRUM MULTI VITAMIN [Concomitant]

REACTIONS (6)
  - BURNING SENSATION [None]
  - LYMPHADENOPATHY [None]
  - PYREXIA [None]
  - SKIN EXFOLIATION [None]
  - STEVENS-JOHNSON SYNDROME [None]
  - THROAT IRRITATION [None]
